FAERS Safety Report 10305638 (Version 2)
Quarter: 2014Q3

REPORT INFORMATION
  Report Type: Spontaneous
  Country: PT (occurrence: PT)
  Receive Date: 20140715
  Receipt Date: 20140814
  Transmission Date: 20150326
  Serious: Yes (Life-Threatening)
  Sender: FDA-Public Use
  Company Number: PT-WATSON-2014-15433

PATIENT
  Age: 47 Year
  Sex: Female

DRUGS (2)
  1. IBUPROFEN. [Concomitant]
     Active Substance: IBUPROFEN
     Indication: PAIN MANAGEMENT
     Dosage: UNK, UNKNOWN
     Route: 065
  2. FIBRISTAL [Suspect]
     Active Substance: ULIPRISTAL
     Indication: LEIOMYOMA
     Dosage: UNK, UNKNOWN
     Route: 048

REACTIONS (1)
  - Angioedema [Unknown]
